FAERS Safety Report 24066652 (Version 3)
Quarter: 2024Q3

REPORT INFORMATION
  Report Type: Spontaneous
  Country: DE (occurrence: DE)
  Receive Date: 20240709
  Receipt Date: 20240916
  Transmission Date: 20241017
  Serious: Yes (Other)
  Sender: ROCHE
  Company Number: DE-002147023-NVSC2024DE131126

PATIENT
  Sex: Female
  Weight: 74 kg

DRUGS (5)
  1. LUCENTIS [Suspect]
     Active Substance: RANIBIZUMAB
     Indication: Product used for unknown indication
     Dosage: STRENGTH: 10/MG/ML??UNK (LEFT EYE)
     Route: 050
     Dates: start: 2007, end: 2007
  2. LUCENTIS [Suspect]
     Active Substance: RANIBIZUMAB
     Dosage: UNK (FORMULATION- 10 MG/ML) (IVI) (RIGHT EYE)
     Route: 050
     Dates: start: 20240514
  3. CANDESARTAN [Concomitant]
     Active Substance: CANDESARTAN
     Indication: Product used for unknown indication
     Dosage: UNK
     Route: 065
  4. COSOPT [Concomitant]
     Active Substance: DORZOLAMIDE HYDROCHLORIDE\TIMOLOL MALEATE
     Indication: Product used for unknown indication
     Dosage: UNK
     Route: 065
  5. XALATAN [Concomitant]
     Active Substance: LATANOPROST
     Indication: Product used for unknown indication
     Dosage: UNK
     Route: 065

REACTIONS (6)
  - Pathologic myopia [Unknown]
  - Swelling face [Recovering/Resolving]
  - Acne [Recovering/Resolving]
  - Paraesthesia [Recovering/Resolving]
  - Eye swelling [Recovering/Resolving]
  - Pruritus [Recovering/Resolving]

NARRATIVE: CASE EVENT DATE: 20240101
